FAERS Safety Report 10097193 (Version 2)
Quarter: 2014Q2

REPORT INFORMATION
  Report Type: Spontaneous
  Country: US (occurrence: US)
  Receive Date: 20140422
  Receipt Date: 20140625
  Transmission Date: 20141212
  Serious: Yes (Hospitalization, Other)
  Sender: FDA-Public Use
  Company Number: US-GILEAD-2014-0100293

PATIENT
  Age: 65 Year
  Sex: Female

DRUGS (4)
  1. LETAIRIS [Suspect]
     Indication: PRODUCT USED FOR UNKNOWN INDICATION
     Dosage: 10 MG, UNK
     Route: 065
     Dates: start: 20120112
  2. ADCIRCA [Concomitant]
     Dosage: 20 MG, UNK
  3. LASIX                              /00032601/ [Concomitant]
     Dosage: 40 MG, UNK
  4. WARFARIN [Concomitant]
     Dosage: 7 MG, UNK

REACTIONS (1)
  - Hip fracture [Recovering/Resolving]
